FAERS Safety Report 6603483-1 (Version None)
Quarter: 2010Q1

REPORT INFORMATION
  Report Type: 
  Country: None (occurrence: None)
  Receive Date: 20100226
  Receipt Date: 20090707
  Transmission Date: 20100710
  Serious: No
  Sender: FDA-Public Use
  Company Number: A0796721A

PATIENT
  Sex: Female

DRUGS (1)
  1. VALTREX [Suspect]
     Indication: HERPES SIMPLEX
     Route: 065

REACTIONS (1)
  - HERPES SIMPLEX SEROLOGY NEGATIVE [None]
